FAERS Safety Report 24369088 (Version 1)
Quarter: 2024Q3

REPORT INFORMATION
  Report Type: Spontaneous
  Country: US (occurrence: US)
  Receive Date: 20240927
  Receipt Date: 20240927
  Transmission Date: 20241016
  Serious: No
  Sender: APOTEX
  Company Number: US-APOTEX-2024AP011142

PATIENT
  Age: 49 Year
  Sex: Female

DRUGS (14)
  1. CYCLOSPORINE [Suspect]
     Active Substance: CYCLOSPORINE
     Indication: Chronic spontaneous urticaria
     Dosage: 100 MILLIGRAM, BID
     Route: 065
  2. CETIRIZINE [Suspect]
     Active Substance: CETIRIZINE HYDROCHLORIDE
     Indication: Chronic spontaneous urticaria
     Dosage: 20 MILLIGRAM, BID
     Route: 065
  3. CIMETIDINE [Suspect]
     Active Substance: CIMETIDINE
     Indication: Chronic spontaneous urticaria
     Dosage: 400 MILLIGRAM, BID
     Route: 065
  4. LEVOCETIRIZINE [Suspect]
     Active Substance: LEVOCETIRIZINE
     Indication: Chronic spontaneous urticaria
     Dosage: 10 MILLIGRAM, BID
     Route: 065
  5. DIPHENHYDRAMINE [Suspect]
     Active Substance: DIPHENHYDRAMINE
     Indication: Chronic spontaneous urticaria
     Dosage: 25 MILLIGRAM, QD
     Route: 065
  6. HYDROXYCHLOROQUINE [Suspect]
     Active Substance: HYDROXYCHLOROQUINE
     Indication: Chronic spontaneous urticaria
     Dosage: 200 MILLIGRAM, QD
     Route: 065
  7. MYCOPHENOLATE MOFETIL [Suspect]
     Active Substance: MYCOPHENOLATE MOFETIL
     Indication: Chronic spontaneous urticaria
     Dosage: 500 MILLIGRAM, BID FOR 2.5 MONTHS
     Route: 065
  8. SULFASALAZINE [Suspect]
     Active Substance: SULFASALAZINE
     Indication: Chronic spontaneous urticaria
     Dosage: 1000 MILLIGRAM, BID
     Route: 065
  9. FEXOFENADINE [Suspect]
     Active Substance: FEXOFENADINE HYDROCHLORIDE
     Indication: Chronic spontaneous urticaria
     Dosage: 360 MILLIGRAM, BID
     Route: 065
  10. HYDROXYZINE [Suspect]
     Active Substance: HYDROXYZINE HYDROCHLORIDE
     Indication: Chronic spontaneous urticaria
     Dosage: 50 MILLIGRAM, Q.H.S.
     Route: 065
  11. HYDROXYZINE [Suspect]
     Active Substance: HYDROXYZINE HYDROCHLORIDE
     Indication: Insomnia
  12. OMALIZUMAB [Suspect]
     Active Substance: OMALIZUMAB
     Indication: Chronic spontaneous urticaria
     Dosage: 300 MILLIGRAM, Q.O.WK.
     Route: 065
  13. OMALIZUMAB [Suspect]
     Active Substance: OMALIZUMAB
     Dosage: 300 MILLIGRAM, EVERY 4 WEEKS
     Route: 065
  14. DAPSONE [Concomitant]
     Active Substance: DAPSONE
     Indication: Chronic spontaneous urticaria
     Dosage: 100 MILLIGRAM, QD
     Route: 065

REACTIONS (3)
  - Hirsutism [Unknown]
  - Hypertension [Unknown]
  - Urticaria [Recovered/Resolved]
